FAERS Safety Report 17180987 (Version 2)
Quarter: 2020Q1

REPORT INFORMATION
  Report Type: Spontaneous
  Country: IR (occurrence: IR)
  Receive Date: 20191219
  Receipt Date: 20200103
  Transmission Date: 20200409
  Serious: Yes (Other)
  Sender: FDA-Public Use
  Company Number: IR-SA-2019SA349312

PATIENT
  Age: 48 Year
  Sex: Male

DRUGS (4)
  1. OFLOXACINE [Concomitant]
     Active Substance: OFLOXACIN
     Dosage: 300 MG, UNK
  2. NALIDIXIC ACID [Concomitant]
     Active Substance: NALIDIXIC ACID
  3. OMNIC [Suspect]
     Active Substance: TAMSULOSIN HYDROCHLORIDE
     Indication: BENIGN PROSTATIC HYPERPLASIA
     Dosage: 0.4 MG, QD
     Route: 048
     Dates: start: 20191124, end: 20191209
  4. LYCOPENE [Concomitant]
     Active Substance: LYCOPENE

REACTIONS (2)
  - Erythema [Recovered/Resolved]
  - Pruritus [Recovered/Resolved]

NARRATIVE: CASE EVENT DATE: 20191206
